FAERS Safety Report 9735358 (Version 1)
Quarter: 2013Q4

REPORT INFORMATION
  Report Type: Spontaneous
  Country: US (occurrence: US)
  Receive Date: 20131206
  Receipt Date: 20131206
  Transmission Date: 20140711
  Serious: Yes (Other)
  Sender: FDA-Public Use
  Company Number: US-ROCHE-1313662

PATIENT
  Age: 61 Year
  Sex: Female

DRUGS (3)
  1. ZELBORAF [Suspect]
     Indication: PRODUCT USED FOR UNKNOWN INDICATION
     Route: 065
  2. ZELBORAF [Suspect]
     Route: 065
  3. ZELBORAF [Suspect]
     Route: 065

REACTIONS (3)
  - Rash [Unknown]
  - Skin cancer [Recovered/Resolved]
  - Fatigue [Unknown]
